FAERS Safety Report 6793365-7 (Version None)
Quarter: 2010Q2

REPORT INFORMATION
  Report Type: 
  Country: None (occurrence: None)
  Receive Date: 20100624
  Receipt Date: 20100208
  Transmission Date: 20101027
  Serious: Yes (Death)
  Sender: FDA-Public Use
  Company Number: US-MYLANLABS-2009S1022199

PATIENT
  Age: 53 Year
  Sex: Male
  Weight: 85.28 kg

DRUGS (5)
  1. CLOZAPINE [Suspect]
     Route: 048
     Dates: start: 20060201
  2. SERTRALINE [Concomitant]
     Route: 048
  3. RISPERDAL [Concomitant]
     Route: 048
  4. COGENTIN [Concomitant]
     Route: 048
  5. CLONAZEPAM [Concomitant]
     Route: 048

REACTIONS (1)
  - LUNG CANCER METASTATIC [None]
